FAERS Safety Report 25709120 (Version 3)
Quarter: 2025Q4

REPORT INFORMATION
  Report Type: Spontaneous
  Country: US (occurrence: US)
  Receive Date: 20250821
  Receipt Date: 20251003
  Transmission Date: 20260117
  Serious: No
  Sender: Vantive US Healthcare
  Company Number: US-VANTIVE-2025VAN003818

PATIENT
  Age: 37 Year
  Sex: Male

DRUGS (1)
  1. EXTRANEAL [Suspect]
     Active Substance: CALCIUM CHLORIDE\ICODEXTRIN\MAGNESIUM CHLORIDE\SODIUM CHLORIDE\SODIUM LACTATE
     Dosage: 1500 (DETAILS NOT REPORTED)
     Route: 033
     Dates: start: 202508

REACTIONS (3)
  - Pruritus [Recovering/Resolving]
  - Rash [Recovering/Resolving]
  - Skin exfoliation [Unknown]

NARRATIVE: CASE EVENT DATE: 20250801
